FAERS Safety Report 8879552 (Version 4)
Quarter: 2012Q4

REPORT INFORMATION
  Report Type: Report from Study
  Country: CA (occurrence: CA)
  Receive Date: 20121031
  Receipt Date: 20121211
  Transmission Date: 20130627
  Serious: Yes (Other)
  Sender: FDA-Public Use
  Company Number: CA-009507513-1210CAN014602

PATIENT
  Age: 56 Year
  Sex: Female
  Weight: 83.6 kg

DRUGS (3)
  1. FOSAPREPITANT DIMEGLUMINE [Suspect]
     Indication: NAUSEA
     Dosage: 150 mg, Once
     Route: 042
     Dates: start: 20121023, end: 20121023
  2. FOSAPREPITANT DIMEGLUMINE [Suspect]
     Indication: VOMITING
  3. FRAGMIN [Suspect]
     Dosage: UNK

REACTIONS (2)
  - Injection site reaction [Recovered/Resolved with Sequelae]
  - Infusion site extravasation [Recovered/Resolved with Sequelae]
